FAERS Safety Report 6131588-0 (Version None)
Quarter: 2009Q1

REPORT INFORMATION
  Report Type: 
  Country: None (occurrence: None)
  Receive Date: 20090325
  Receipt Date: 20081112
  Transmission Date: 20090719
  Serious: No
  Sender: FDA-Public Use
  Company Number: US-BRISTOL-MYERS SQUIBB COMPANY-14403323

PATIENT
  Age: 60 Year
  Sex: Female

DRUGS (7)
  1. ERBITUX [Suspect]
     Indication: COLON CANCER METASTATIC
  2. COUMADIN [Concomitant]
  3. PRILOSEC [Concomitant]
  4. ALLEGRA [Concomitant]
  5. OXYCODONE HCL [Concomitant]
  6. WELCHOL [Concomitant]
  7. MIRALAX [Concomitant]

REACTIONS (1)
  - HORDEOLUM [None]
